FAERS Safety Report 4360919-7 (Version None)
Quarter: 2004Q2

REPORT INFORMATION
  Report Type: 
  Country: None (occurrence: None)
  Receive Date: 20040517
  Receipt Date: 20040415
  Transmission Date: 20050107
  Serious: Yes (Other)
  Sender: FDA-Public Use
  Company Number: 2004-UK-00365UK

PATIENT
  Age: 78 Year
  Sex: Female

DRUGS (6)
  1. SPIRIVA [Suspect]
     Indication: CHRONIC OBSTRUCTIVE AIRWAYS DISEASE
     Dosage: 18 MCG (18 MCG DAILY), IN
     Route: 055
     Dates: start: 20040224
  2. ALBUTEROL SULFATE [Concomitant]
  3. BECLOMETASONE (BECLOMETASONE) (NR) [Concomitant]
  4. PREDNISOLONE [Concomitant]
  5. AMOXICILLIN (AMOXICILLIN) (NR) [Concomitant]
  6. HYPROMELLOSE (HYPROMELLOSE) (NR) [Concomitant]

REACTIONS (2)
  - CHROMATURIA [None]
  - HEPATITIS [None]
